FAERS Safety Report 24987515 (Version 2)
Quarter: 2025Q1

REPORT INFORMATION
  Report Type: Report from Study
  Country: CA (occurrence: CA)
  Receive Date: 20250219
  Receipt Date: 20250221
  Transmission Date: 20250409
  Serious: No
  Sender: LUNDBECK
  Company Number: CA-LUNDBECK-DKLU4010914

PATIENT
  Age: 66 Year
  Sex: Female

DRUGS (1)
  1. VYEPTI [Suspect]
     Active Substance: EPTINEZUMAB-JJMR
     Indication: Migraine
     Dosage: 300 MILLIGRAM
     Route: 041
     Dates: start: 20250129

REACTIONS (7)
  - Raynaud^s phenomenon [Not Recovered/Not Resolved]
  - Feeling hot [Recovered/Resolved]
  - Chest discomfort [Recovered/Resolved]
  - Eye pruritus [Recovered/Resolved]
  - Migraine [Unknown]
  - Pruritus [Recovered/Resolved]
  - Chillblains [Not Recovered/Not Resolved]
